FAERS Safety Report 19771139 (Version 1)
Quarter: 2021Q3

REPORT INFORMATION
  Report Type: Spontaneous
  Country: US (occurrence: US)
  Receive Date: 20210901
  Receipt Date: 20210901
  Transmission Date: 20211014
  Serious: Yes (Hospitalization, Other)
  Sender: FDA-Public Use
  Company Number: US-BION-010016

PATIENT
  Age: 52 Year
  Sex: Female

DRUGS (4)
  1. VANCOMYCIN [Concomitant]
     Active Substance: VANCOMYCIN
     Route: 042
  2. MEROPENEM. [Concomitant]
     Active Substance: MEROPENEM
  3. ERTAPENEM/ERTAPENEM SODIUM [Concomitant]
     Active Substance: ERTAPENEM
  4. ZONISAMIDE. [Suspect]
     Active Substance: ZONISAMIDE
     Indication: OSTEOARTHRITIS

REACTIONS (3)
  - Product use in unapproved indication [Not Recovered/Not Resolved]
  - Hallucination [Recovered/Resolved]
  - Psychotic disorder [Recovered/Resolved]
